FAERS Safety Report 13903475 (Version 1)
Quarter: 2017Q3

REPORT INFORMATION
  Report Type: Spontaneous
  Country: BR (occurrence: BR)
  Receive Date: 20170824
  Receipt Date: 20170824
  Transmission Date: 20171127
  Serious: Yes (Other)
  Sender: FDA-Public Use
  Company Number: BR-009507513-1708BRA009174

PATIENT
  Sex: Female

DRUGS (1)
  1. INVANZ [Suspect]
     Active Substance: ERTAPENEM SODIUM
     Indication: ANTIBIOTIC THERAPY
     Dosage: UNK, FOR 7 DAYS

REACTIONS (1)
  - Hypertensive crisis [Recovered/Resolved]
